FAERS Safety Report 9664045 (Version 1)
Quarter: 2013Q4

REPORT INFORMATION
  Report Type: Spontaneous
  Country: US (occurrence: None)
  Receive Date: 20131030
  Receipt Date: 20131030
  Transmission Date: 20140711
  Serious: No
  Sender: FDA-Public Use
  Company Number: None

PATIENT
  Age: 51 Year
  Sex: Female

DRUGS (1)
  1. HYDROCHLOROTHIAZIDE [Suspect]
     Indication: FLUID RETENTION
     Dosage: 1XDAY
     Route: 048

REACTIONS (6)
  - Rash [None]
  - Hypersensitivity vasculitis [None]
  - Nephropathy [None]
  - Pain [None]
  - Depression [None]
  - Fatigue [None]
